FAERS Safety Report 16627060 (Version 1)
Quarter: 2019Q3

REPORT INFORMATION
  Report Type: Spontaneous
  Country: US (occurrence: US)
  Receive Date: 20190724
  Receipt Date: 20190724
  Transmission Date: 20191004
  Serious: No
  Sender: FDA-Public Use
  Company Number: US-SA-2019SA199554

PATIENT
  Sex: Female

DRUGS (4)
  1. ESTROGEL [Concomitant]
     Active Substance: ESTRADIOL
  2. BLACK COHOSH [CIMICIFUGA RACEMOSA ROOT] [Concomitant]
  3. DUPIXENT [Suspect]
     Active Substance: DUPILUMAB
     Indication: DERMATITIS ATOPIC
     Dosage: 300 MG/ML, QOW
     Route: 058
     Dates: start: 20190228
  4. GINKGO BILOBA [Concomitant]
     Active Substance: GINKGO

REACTIONS (2)
  - Pain [Not Recovered/Not Resolved]
  - Dermatitis atopic [Not Recovered/Not Resolved]
